FAERS Safety Report 15034453 (Version 2)
Quarter: 2019Q4

REPORT INFORMATION
  Report Type: Spontaneous
  Country: GB (occurrence: GB)
  Receive Date: 20180620
  Receipt Date: 20191120
  Transmission Date: 20200122
  Serious: No
  Sender: FDA-Public Use
  Company Number: GB-TEVA-2018-GB-909638

PATIENT
  Age: 26 Year
  Sex: Female
  Weight: 64 kg

DRUGS (11)
  1. LYMECYCLINE [Concomitant]
     Active Substance: LYMECYCLINE
     Indication: ACNE
     Dosage: 1 DOSAGE FORMS DAILY;
     Dates: start: 20180322, end: 20180419
  2. EPADERM [Concomitant]
     Active Substance: MINERAL OIL\PETROLATUM\WAX, EMULSIFYING
     Dosage: APPLY FREQUENTLY SEVERAL TIMES THROUGHOUT THE DAY
     Dates: start: 20180129, end: 20180330
  3. FEXOFENADINE [Concomitant]
     Active Substance: FEXOFENADINE HYDROCHLORIDE
     Indication: HYPERSENSITIVITY
     Dates: start: 20180129, end: 20180226
  4. AMOXICILLIN. [Concomitant]
     Active Substance: AMOXICILLIN
     Indication: ANTIBIOTIC THERAPY
     Dosage: 30 ML DAILY;
     Dates: start: 20180129, end: 20180205
  5. PERMETHRIN. [Concomitant]
     Active Substance: PERMETHRIN
     Dosage: APPLY OVER WHOLE BODY INCLUDING FACE, NECK, SCA...
     Dates: start: 20180306, end: 20180313
  6. HYDROCORTISONE. [Concomitant]
     Active Substance: HYDROCORTISONE
     Dosage: APPLY SPARINGLY ONCE OR TWICE DAILY
     Dates: start: 20180129, end: 20180212
  7. BETAMETHASONE VALERATE. [Concomitant]
     Active Substance: BETAMETHASONE VALERATE
     Indication: RASH
     Dosage: 2 DOSAGE FORMS DAILY; SPARINGLY
     Dates: start: 20180322, end: 20180419
  8. ADAPALENE. [Concomitant]
     Active Substance: ADAPALENE
     Indication: ACNE
     Dosage: APPLY AT NIGHT
     Dates: start: 20171004
  9. AZELAIC ACID. [Concomitant]
     Active Substance: AZELAIC ACID
     Indication: ACNE
     Dosage: 4 DOSAGE FORMS DAILY; APPLY TWICE DAILY
     Dates: start: 20180322, end: 20180419
  10. IBUPROFEN. [Suspect]
     Active Substance: IBUPROFEN
     Dates: start: 20180427
  11. METRONIDAZOLE. [Concomitant]
     Active Substance: METRONIDAZOLE
     Dosage: 3 DOSAGE FORMS DAILY;
     Dates: start: 20180427

REACTIONS (2)
  - Dermatitis acneiform [Unknown]
  - Rash pruritic [Unknown]
